FAERS Safety Report 7950458-6 (Version None)
Quarter: 2011Q4

REPORT INFORMATION
  Report Type: 
  Country: None (occurrence: None)
  Receive Date: 20111130
  Receipt Date: 20111116
  Transmission Date: 20120403
  Serious: Yes (Other)
  Sender: FDA-Public Use
  Company Number: CA-MYLANLABS-2011S1024189

PATIENT
  Age: 7 Year
  Sex: Male

DRUGS (1)
  1. TACROLIMUS [Suspect]
     Indication: FOCAL SEGMENTAL GLOMERULOSCLEROSIS
     Dosage: 0.18 MG/KG/DAY
     Route: 065

REACTIONS (2)
  - KIDNEY FIBROSIS [None]
  - CONDITION AGGRAVATED [None]
